FAERS Safety Report 7422598-1 (Version None)
Quarter: 2011Q2

REPORT INFORMATION
  Report Type: 
  Country: None (occurrence: None)
  Receive Date: 20110419
  Receipt Date: 20110405
  Transmission Date: 20111010
  Serious: Yes (Death)
  Sender: FDA-Public Use
  Company Number: US-JNJFOC-20100804445

PATIENT
  Sex: Female
  Weight: 174.64 kg

DRUGS (12)
  1. CLARITIN [Concomitant]
     Indication: PREMEDICATION
  2. REMICADE [Suspect]
     Indication: RHEUMATOID ARTHRITIS
     Route: 042
  3. REMICADE [Suspect]
     Route: 042
  4. ARAVA [Concomitant]
  5. FOLATE [Concomitant]
  6. OXYCODONE [Concomitant]
  7. OXYCODONE HCL AND ACETAMINOPHEN [Concomitant]
  8. METHOTREXATE [Concomitant]
  9. IODINE [Concomitant]
  10. REMICADE [Suspect]
     Route: 042
  11. ATENOLOL [Concomitant]
  12. LASIX [Concomitant]

REACTIONS (5)
  - DEATH [None]
  - CHEST PAIN [None]
  - DYSPNOEA [None]
  - INFUSION RELATED REACTION [None]
  - NAUSEA [None]
